FAERS Safety Report 4863514-6 (Version None)
Quarter: 2005Q4

REPORT INFORMATION
  Report Type: 
  Country: None (occurrence: None)
  Receive Date: 20051222
  Receipt Date: 20050325
  Transmission Date: 20060501
  Serious: No
  Sender: FDA-Public Use
  Company Number: US-GLAXOSMITHKLINE-A0551330A

PATIENT
  Sex: Male

DRUGS (1)
  1. FLONASE [Suspect]
     Indication: SINUS CONGESTION
     Route: 045

REACTIONS (3)
  - DRY MOUTH [None]
  - LIP DRY [None]
  - TONGUE DRY [None]
